FAERS Safety Report 5115630-1 (Version None)
Quarter: 2006Q3

REPORT INFORMATION
  Report Type: 
  Country: None (occurrence: None)
  Receive Date: 20060927
  Receipt Date: 20060907
  Transmission Date: 20061208
  Serious: Yes (Death, Life-Threatening, Hospitalization, Disabling)
  Sender: FDA-Public Use
  Company Number: PHEH2006US11445

PATIENT
  Age: 73 Year
  Sex: Male
  Weight: 72.562 kg

DRUGS (7)
  1. EXJADE [Suspect]
     Dosage: 1500 MG, QD
     Route: 048
     Dates: start: 20060505, end: 20060508
  2. CIPRO [Concomitant]
     Indication: CROHN'S DISEASE
  3. PHOSLO [Concomitant]
     Indication: RENAL FAILURE
     Dosage: 667 MG, QD
     Route: 048
  4. ADVAIR DISKUS 100/50 [Concomitant]
     Indication: ASTHMA
     Dosage: 1 PUFF, BID
  5. SINGULAIR [Concomitant]
     Indication: ASTHMA
     Route: 048
  6. PREDNISONE [Concomitant]
     Indication: COLITIS
     Dates: start: 20060523
  7. IMODIUM [Concomitant]

REACTIONS (23)
  - ABDOMINAL PAIN [None]
  - ALANINE AMINOTRANSFERASE INCREASED [None]
  - ASPARTATE AMINOTRANSFERASE INCREASED [None]
  - ASTHENIA [None]
  - BLOOD ALKALINE PHOSPHATASE INCREASED [None]
  - BLOOD URINE PRESENT [None]
  - CARDIAC ARREST [None]
  - CIRCULATORY COLLAPSE [None]
  - CLOSTRIDIUM DIFFICILE COLITIS [None]
  - DECREASED APPETITE [None]
  - DEHYDRATION [None]
  - DIARRHOEA HAEMORRHAGIC [None]
  - DYSPNOEA [None]
  - HEART RATE INCREASED [None]
  - HEPATIC FAILURE [None]
  - INTERNATIONAL NORMALISED RATIO INCREASED [None]
  - INTUBATION [None]
  - LUNG INFILTRATION [None]
  - NAUSEA [None]
  - PSEUDOMONAS INFECTION [None]
  - PYREXIA [None]
  - RESPIRATORY FAILURE [None]
  - VOMITING [None]
